FAERS Safety Report 16327980 (Version 1)
Quarter: 2019Q2

REPORT INFORMATION
  Report Type: Spontaneous
  Country: FR (occurrence: FR)
  Receive Date: 20190518
  Receipt Date: 20190518
  Transmission Date: 20190711
  Serious: Yes (Disabling)
  Sender: FDA-Public Use
  Company Number: FR-ABBVIE-19K-056-2730350-00

PATIENT
  Age: 45 Year
  Sex: Male
  Weight: 72 kg

DRUGS (5)
  1. LOGIMAX [Concomitant]
     Active Substance: FELODIPINE\METOPROLOL SUCCINATE
     Indication: BLOOD PRESSURE MEASUREMENT
  2. STABLON [Concomitant]
     Active Substance: TIANEPTINE
     Indication: PANCREATITIS
     Route: 048
     Dates: start: 2004
  3. HUMIRA [Suspect]
     Active Substance: ADALIMUMAB
     Indication: SPONDYLITIS
     Route: 058
     Dates: start: 20190301, end: 20190401
  4. HUMIRA [Suspect]
     Active Substance: ADALIMUMAB
     Route: 058
     Dates: start: 20190401, end: 2019
  5. MOPRAL [Concomitant]
     Active Substance: OMEPRAZOLE
     Indication: GASTROOESOPHAGEAL REFLUX DISEASE
     Route: 048
     Dates: start: 2004

REACTIONS (6)
  - Incorrect route of product administration [Unknown]
  - Drug intolerance [Unknown]
  - Myalgia [Unknown]
  - Vertigo [Recovered/Resolved]
  - Fatigue [Recovered/Resolved]
  - Headache [Recovered/Resolved]

NARRATIVE: CASE EVENT DATE: 20190302
